FAERS Safety Report 8966272 (Version 2)
Quarter: 2013Q1

REPORT INFORMATION
  Report Type: Spontaneous
  Country: AT (occurrence: AT)
  Receive Date: 20121217
  Receipt Date: 20130321
  Transmission Date: 20140127
  Serious: Yes (Hospitalization)
  Sender: FDA-Public Use
  Company Number: AT-AMGEN-AUTSP2012079607

PATIENT
  Sex: Male

DRUGS (3)
  1. XGEVA [Suspect]
     Indication: PROSTATE CANCER
  2. ZYTIGA [Concomitant]
  3. CALCIUM VITAMIN D [Concomitant]

REACTIONS (3)
  - Lethargy [Unknown]
  - Fatigue [Unknown]
  - Hypophosphataemia [Recovered/Resolved]
